FAERS Safety Report 15671385 (Version 4)
Quarter: 2020Q1

REPORT INFORMATION
  Report Type: Report from Study
  Country: GB (occurrence: GB)
  Receive Date: 20181129
  Receipt Date: 20200203
  Transmission Date: 20200409
  Serious: Yes (Hospitalization)
  Sender: FDA-Public Use
  Company Number: GB-AMGEN-GBRCT2018120484

PATIENT
  Age: 12 Year
  Sex: Male
  Weight: 37.4 kg

DRUGS (42)
  1. CEFTAZIDIME. [Concomitant]
     Active Substance: CEFTAZIDIME
     Dosage: 2-2000 MG
     Route: 042
     Dates: start: 20180710, end: 20180730
  2. MICAFUNGIN. [Concomitant]
     Active Substance: MICAFUNGIN SODIUM
     Dosage: 38-148  MILLIGRAM
     Route: 042
     Dates: start: 20180702, end: 20180726
  3. METHOTREXATE. [Suspect]
     Active Substance: METHOTREXATE
     Indication: ACUTE LYMPHOCYTIC LEUKAEMIA
     Dosage: 15 -60 MG
     Route: 065
     Dates: start: 20180629
  4. DAUNORUBICIN [Suspect]
     Active Substance: DAUNORUBICIN
     Indication: ACUTE LYMPHOCYTIC LEUKAEMIA
     Dosage: 32.5 MILLIGRAM
     Route: 065
     Dates: start: 20180621
  5. HYDROXYCARBAMIDE [Concomitant]
     Active Substance: HYDROXYUREA
     Dosage: 600 MILLIGRAM
     Route: 048
     Dates: start: 20180615, end: 20180620
  6. PHYTOMENADIONE [Concomitant]
     Active Substance: PHYTONADIONE
     Dosage: 10 MILLIGRAM
     Route: 042
     Dates: start: 20180725, end: 20180725
  7. IBUPROFEN. [Concomitant]
     Active Substance: IBUPROFEN
     Dosage: 300 MILLIGRAM
     Route: 048
     Dates: start: 20180808, end: 20180808
  8. DEXAMETHASONE. [Suspect]
     Active Substance: DEXAMETHASONE
     Indication: ACUTE LYMPHOCYTIC LEUKAEMIA
     Dosage: 4 MILLIGRAM
     Route: 065
     Dates: start: 20180621
  9. CYCLOPHOSPHAMIDE. [Suspect]
     Active Substance: CYCLOPHOSPHAMIDE
     Indication: ACUTE LYMPHOCYTIC LEUKAEMIA
     Dosage: 1200 MILLIGRAM
     Route: 065
     Dates: start: 20180807
  10. HYDROCORTISONE. [Suspect]
     Active Substance: HYDROCORTISONE
     Indication: ACUTE LYMPHOCYTIC LEUKAEMIA
     Dosage: 60 MILLIGRAM
     Route: 065
     Dates: start: 20180622
  11. PEG/L-ASPARAGINASE [Concomitant]
     Active Substance: PEGASPARGASE
     Indication: ACUTE LYMPHOCYTIC LEUKAEMIA
     Dosage: 3150 UNK
     Dates: start: 20180624
  12. ALLOPURINOL. [Concomitant]
     Active Substance: ALLOPURINOL
     Dosage: 100 MILLIGRAM
     Route: 048
     Dates: start: 20180614, end: 20180625
  13. SALINE [Concomitant]
     Active Substance: SODIUM CHLORIDE
     Dosage: UNK
     Route: 042
     Dates: start: 20180621, end: 20180706
  14. GENTAMICIN. [Concomitant]
     Active Substance: GENTAMICIN
     Dosage: 265 MILLIGRAM
     Route: 042
     Dates: start: 20180826, end: 20180826
  15. MORPHINE SULPHATE [Concomitant]
     Active Substance: MORPHINE SULFATE
     Dosage: 5 MILLIGRAM
     Route: 048
     Dates: start: 20180625, end: 20180724
  16. VINCRISTINE [Suspect]
     Active Substance: VINCRISTINE
     Indication: ACUTE LYMPHOCYTIC LEUKAEMIA
     Dosage: 1.9 MG/M2, UNK AND 1.8 TO 1.9 MG
     Route: 065
     Dates: start: 20180621
  17. MERCAPTOPURINE. [Suspect]
     Active Substance: MERCAPTOPURINE
     Indication: ACUTE LYMPHOCYTIC LEUKAEMIA
     Dosage: 72 MILLIGRAM
     Route: 065
     Dates: start: 20180807
  18. PARACETAMOL [Concomitant]
     Active Substance: ACETAMINOPHEN
     Dosage: 400 TO 600 MG
     Route: 042
     Dates: start: 20180621, end: 20180722
  19. ESOMEPRAZOLE. [Concomitant]
     Active Substance: ESOMEPRAZOLE MAGNESIUM
     Dosage: 40 MILLIGRAM
     Route: 042
     Dates: start: 20180625, end: 20180813
  20. POTASSIUM [Concomitant]
     Active Substance: POTASSIUM
     Dosage: 8-12 MILLIGRAM
     Route: 048
     Dates: start: 20180812, end: 20180812
  21. RANITIDINE. [Concomitant]
     Active Substance: RANITIDINE
     Dosage: 50 TO 75 MG
     Dates: start: 20180623, end: 20180814
  22. METOCLOPRAMIDE. [Concomitant]
     Active Substance: METOCLOPRAMIDE
     Dosage: 5 MILLIGRAM
     Route: 042
     Dates: start: 20180626, end: 20180712
  23. FUROSIMIDE [Concomitant]
     Active Substance: FUROSEMIDE
     Dosage: 20 MILLIGRAM
     Route: 042
     Dates: start: 20180616, end: 20180708
  24. LACTULOSE. [Concomitant]
     Active Substance: LACTULOSE
     Dosage: 5 MILLILITER
     Route: 048
     Dates: start: 20180616, end: 20180623
  25. CHLORPHENAMINE [Concomitant]
     Active Substance: CHLORPHENIRAMINE MALEATE
     Dosage: 10 MILLIGRAM
     Route: 042
     Dates: start: 20180630, end: 20180701
  26. PIPERACILLIN AND TAZOBACTAM [Concomitant]
     Active Substance: PIPERACILLIN SODIUM\TAZOBACTAM SODIUM
     Dosage: 3330 MICROGRAM AND 3400 MILLIGRAM
     Route: 042
     Dates: start: 2018, end: 20180828
  27. HYOSCINE BUTYLBROMIDE [Concomitant]
     Active Substance: BUTYLSCOPOLAMINE BROMIDE
     Dosage: 20 MILLIGRAM
     Route: 042
     Dates: start: 20180625, end: 20180625
  28. METRONIDAZOLE. [Concomitant]
     Active Substance: METRONIDAZOLE
     Dosage: 300 MILLIGRAM
     Route: 042
     Dates: start: 20180626, end: 20180701
  29. AMIKACIN. [Concomitant]
     Active Substance: AMIKACIN
     Indication: INFECTION IN AN IMMUNOCOMPROMISED HOST
     Dosage: 740-800 MILLIGRAM
     Route: 042
     Dates: start: 20180615, end: 20180830
  30. VORICONAZOLE. [Concomitant]
     Active Substance: VORICONAZOLE
     Dosage: 100-200 MILLIGRAM AND  330 MICROGRAM
     Dates: start: 20180727
  31. CYCLIZINE [Concomitant]
     Active Substance: CYCLIZINE
     Dosage: 50 MILLIGRAM
     Route: 042
     Dates: start: 20180625, end: 20180710
  32. GLUCOSE [Concomitant]
     Active Substance: DEXTROSE
     Dosage: UNK
     Route: 042
     Dates: start: 20180621, end: 20180706
  33. COTRIMOXAZOLE [Concomitant]
     Active Substance: SULFAMETHOXAZOLE\TRIMETHOPRIM
     Dosage: 480-900  MILLIGRAM
     Dates: start: 20180619
  34. CYTARABINE. [Suspect]
     Active Substance: CYTARABINE
     Indication: ACUTE LYMPHOCYTIC LEUKAEMIA
     Dosage: 60-90 MG UNK AND 90 MUG, UNK
     Route: 042
     Dates: start: 20180622
  35. ONDANSETRON [Concomitant]
     Active Substance: ONDANSETRON
     Dosage: 4-8 MG
     Dates: start: 20180621, end: 20180812
  36. AZITHROMYCIN ANHYDROUS. [Concomitant]
     Active Substance: AZITHROMYCIN ANHYDROUS
     Dosage: 400 MILLIGRAM
     Route: 048
     Dates: start: 20180620, end: 20180624
  37. TEICOPLANIN [Concomitant]
     Active Substance: TEICOPLANIN
     Dosage: 370 MILLIGRAM
     Route: 042
     Dates: start: 20180723, end: 20180727
  38. CONTRIMOXAZOLE [Concomitant]
     Dosage: 400 MILLIGRAM
     Route: 042
     Dates: start: 20180708, end: 20180708
  39. LANSOPRAZOLE. [Concomitant]
     Active Substance: LANSOPRAZOLE
     Dosage: 15 MILLIGRAM
     Route: 048
     Dates: start: 20180715, end: 20180722
  40. CARFILZOMIB [Suspect]
     Active Substance: CARFILZOMIB
     Indication: ACUTE LYMPHOCYTIC LEUKAEMIA
     Dosage: 54 MG, PER CHEMO REGIM
     Route: 042
     Dates: start: 20180621
  41. MOVICOL [Concomitant]
     Active Substance: POLYETHYLENE GLYCOL 3350\POTASSIUM CHLORIDE\SODIUM BICARBONATE\SODIUM CHLORIDE
     Dosage: 1 UNK
     Route: 048
     Dates: start: 20180618, end: 20180624
  42. PLATELETS [Concomitant]
     Active Substance: HUMAN PLATELET, ALLOGENIC
     Dosage: 1 UNK
     Route: 042
     Dates: start: 20180617, end: 20180829

REACTIONS (1)
  - Infection in an immunocompromised host [Recovered/Resolved]

NARRATIVE: CASE EVENT DATE: 20180827
